FAERS Safety Report 20941283 (Version 1)
Quarter: 2022Q2

REPORT INFORMATION
  Report Type: Spontaneous
  Country: US (occurrence: US)
  Receive Date: 20220609
  Receipt Date: 20220609
  Transmission Date: 20220720
  Serious: Yes (Other)
  Sender: FDA-Public Use
  Company Number: US-COOPERSURGICAL, INC.-US-2022CPS001843

PATIENT
  Age: 30 Year
  Sex: Female
  Weight: 81.633 kg

DRUGS (2)
  1. PARAGARD T 380A [Suspect]
     Active Substance: COPPER
     Indication: Product used for unknown indication
     Dosage: UNK
     Route: 015
     Dates: start: 20210119, end: 20220322
  2. Vitamins and supplements [Concomitant]
     Indication: Product used for unknown indication
     Route: 065

REACTIONS (8)
  - Cystitis [Unknown]
  - Flank pain [Unknown]
  - Haematuria [Unknown]
  - Abdominal pain [Unknown]
  - Complication of device removal [Recovered/Resolved]
  - Embedded device [Recovered/Resolved]
  - Device issue [Recovered/Resolved]
  - Device dislocation [Recovered/Resolved]

NARRATIVE: CASE EVENT DATE: 20220221
